FAERS Safety Report 20860332 (Version 1)
Quarter: 2022Q2

REPORT INFORMATION
  Report Type: Spontaneous
  Country: CN (occurrence: CN)
  Receive Date: 20220523
  Receipt Date: 20220523
  Transmission Date: 20220720
  Serious: Yes (Hospitalization)
  Sender: FDA-Public Use
  Company Number: None

PATIENT
  Age: 65 Year
  Sex: Female
  Weight: 63 kg

DRUGS (8)
  1. CYCLOPHOSPHAMIDE [Suspect]
     Active Substance: CYCLOPHOSPHAMIDE
     Indication: Breast cancer female
     Dosage: 960 MG, QD, (0.9% SODIUM CHLORIDE INJECTION 100ML + CYCLOPHOSPHAMIDE FOR INJECTION 960 MG)
     Route: 041
     Dates: start: 20220421, end: 20220421
  2. CYCLOPHOSPHAMIDE [Suspect]
     Active Substance: CYCLOPHOSPHAMIDE
     Indication: Breast cancer stage I
     Dosage: DOSE RE-INTRODUCED, (0.9% SODIUM CHLORIDE INJECTION + CYCLOPHOSPHAMIDE FOR INJECTION)
     Route: 041
  3. SODIUM CHLORIDE [Suspect]
     Active Substance: SODIUM CHLORIDE
     Indication: Medication dilution
     Dosage: 100 ML, QD, (0.9% SODIUM CHLORIDE INJECTION 100ML + CYCLOPHOSPHAMIDE FOR INJECTION 960 MG)
     Route: 041
     Dates: start: 20220421, end: 20220421
  4. SODIUM CHLORIDE [Suspect]
     Active Substance: SODIUM CHLORIDE
     Dosage: DOSE RE-INTRODUCED, (0.9% SODIUM CHLORIDE INJECTION + CYCLOPHOSPHAMIDE FOR INJECTION)
     Route: 065
  5. DEXTROSE MONOHYDRATE [Suspect]
     Active Substance: DEXTROSE MONOHYDRATE
     Indication: Medication dilution
     Dosage: 250 ML, QD, (5% GLUCOSE INJECTION 250ML + PIRARUBICIN HYDROCHLORIDE FOR INJECTION 80 MG)
     Route: 041
     Dates: start: 20220421, end: 20220421
  6. DEXTROSE MONOHYDRATE [Suspect]
     Active Substance: DEXTROSE MONOHYDRATE
     Dosage: DOSE-REINTRODUCED, (5% GLUCOSE INJECTION + PIRARUBICIN HYDROCHLORIDE FOR INJECTION)
     Route: 065
  7. PIRARUBICIN HYDROCHLORIDE [Suspect]
     Active Substance: PIRARUBICIN HYDROCHLORIDE
     Indication: Breast cancer female
     Dosage: 80 MG, QD
     Route: 041
     Dates: start: 20220421, end: 20220421
  8. PIRARUBICIN HYDROCHLORIDE [Suspect]
     Active Substance: PIRARUBICIN HYDROCHLORIDE
     Indication: Breast cancer stage I
     Dosage: DOSE RE-INTRODUCED
     Route: 065

REACTIONS (2)
  - White blood cell count decreased [Recovering/Resolving]
  - Neutrophil count decreased [Recovering/Resolving]

NARRATIVE: CASE EVENT DATE: 20220430
